FAERS Safety Report 7956015-X (Version None)
Quarter: 2011Q4

REPORT INFORMATION
  Report Type: 
  Country: None (occurrence: None)
  Receive Date: 20111205
  Receipt Date: 20111114
  Transmission Date: 20120403
  Serious: Yes (Other)
  Sender: FDA-Public Use
  Company Number: US-JNJCP-30000078667

PATIENT
  Sex: Male

DRUGS (1)
  1. AVEENO SKIN RELIEF MOISTURIZING CREAM USA AVSRMCUS [Suspect]
     Indication: DRY SKIN
     Dosage: DAILY
     Route: 061

REACTIONS (1)
  - SKIN CANCER [None]
